FAERS Safety Report 8777709 (Version 1)
Quarter: 2012Q4

REPORT INFORMATION
  Report Type: 
  Country: US (occurrence: US)
  Receive Date: 20120910
  Receipt Date: 20120910
  Transmission Date: 20130627
  Serious: No
  Sender: FDA-Public Use
  Company Number: US-009507513-1208USA011941

PATIENT

DRUGS (2)
  1. CLARITIN [Suspect]
     Indication: PRODUCT USED FOR UNKNOWN INDICATION
     Dosage: 10 mg, qd
     Route: 048
     Dates: start: 201208
  2. CLARITIN [Suspect]
     Indication: MEDICAL OBSERVATION
     Dosage: 10 mg, qam
     Route: 048
     Dates: start: 20120817

REACTIONS (1)
  - Hypoaesthesia oral [Unknown]
